FAERS Safety Report 6159557-5 (Version None)
Quarter: 2009Q2

REPORT INFORMATION
  Report Type: 
  Country: None (occurrence: None)
  Receive Date: 20090416
  Receipt Date: 20090416
  Transmission Date: 20091009
  Serious: Yes (Hospitalization)
  Sender: FDA-Public Use
  Company Number: None

PATIENT
  Sex: Male
  Weight: 97.977 kg

DRUGS (1)
  1. NITROGLYCERIN [Suspect]
     Indication: DYSPNOEA
     Dosage: 0.4MG 95MINX3DOSES SL
     Route: 060
     Dates: start: 20090323

REACTIONS (1)
  - PRODUCT SOLUBILITY ABNORMAL [None]
